FAERS Safety Report 12287009 (Version 4)
Quarter: 2016Q3

REPORT INFORMATION
  Report Type: Spontaneous
  Country: FR (occurrence: FR)
  Receive Date: 20160420
  Receipt Date: 20160711
  Transmission Date: 20161109
  Serious: Yes (Hospitalization)
  Sender: FDA-Public Use
  Company Number: FR-IGI LABORATORIES, INC.-1050776

PATIENT
  Age: 60 Year
  Sex: Female

DRUGS (12)
  1. CARBOPLATINE HOSPIRA [Suspect]
     Active Substance: CARBOPLATIN
     Route: 042
     Dates: start: 20151124
  2. SOLU-MEDROL [Suspect]
     Active Substance: METHYLPREDNISOLONE SODIUM SUCCINATE
     Route: 065
     Dates: start: 20151124, end: 20160127
  3. CARBOPLATINE HOSPIRA [Suspect]
     Active Substance: CARBOPLATIN
     Route: 042
     Dates: start: 20160106
  4. PACLITAXEL HOSPIRA [Suspect]
     Active Substance: PACLITAXEL
     Route: 042
     Dates: start: 20151124
  5. PACLITAXEL HOSPIRA [Suspect]
     Active Substance: PACLITAXEL
     Route: 042
     Dates: start: 20160106
  6. ZOPHREN [Suspect]
     Active Substance: ONDANSETRON
     Route: 042
  7. CARBOPLATINE HOSPIRA [Suspect]
     Active Substance: CARBOPLATIN
     Route: 042
     Dates: start: 20160127
  8. ZANTAC [Suspect]
     Active Substance: RANITIDINE HYDROCHLORIDE
     Indication: PREMEDICATION
     Route: 042
     Dates: start: 20151124, end: 20160127
  9. POLARAMINE [Suspect]
     Active Substance: DEXCHLORPHENIRAMINE MALEATE
     Route: 042
     Dates: start: 20151124, end: 20160127
  10. CARBOPLATINE HOSPIRA [Suspect]
     Active Substance: CARBOPLATIN
     Route: 042
     Dates: start: 20151216
  11. PACLITAXEL HOSPIRA [Suspect]
     Active Substance: PACLITAXEL
     Route: 042
     Dates: start: 20160127
  12. PACLITAXEL HOSPIRA [Suspect]
     Active Substance: PACLITAXEL
     Route: 042
     Dates: start: 20151216

REACTIONS (12)
  - Cholelithiasis [Unknown]
  - Erythema [Not Recovered/Not Resolved]
  - Infection [Unknown]
  - Hepatomegaly [Unknown]
  - Chills [Unknown]
  - Hypothermia [Unknown]
  - Pseudolymphoma [Not Recovered/Not Resolved]
  - Pruritus [Unknown]
  - Oral disorder [Recovering/Resolving]
  - Hepatic steatosis [Unknown]
  - Dermatitis exfoliative [Unknown]
  - Pruritus [Unknown]

NARRATIVE: CASE EVENT DATE: 20160104
